FAERS Safety Report 6119285-9 (Version None)
Quarter: 2009Q1

REPORT INFORMATION
  Report Type: 
  Country: None (occurrence: None)
  Receive Date: 20090316
  Receipt Date: 20090304
  Transmission Date: 20090719
  Serious: Yes (Other)
  Sender: FDA-Public Use
  Company Number: JP-AMGEN-US332571

PATIENT
  Sex: Female
  Weight: 37 kg

DRUGS (3)
  1. ENBREL [Suspect]
     Indication: RHEUMATOID ARTHRITIS
     Route: 058
     Dates: start: 20071001, end: 20090129
  2. RHEUMATREX [Suspect]
     Indication: RHEUMATOID ARTHRITIS
     Route: 048
     Dates: start: 19990101, end: 20090130
  3. FOSAMAX [Concomitant]
     Dosage: 35 MG, FREQUENCY UNKNOWN
     Route: 065

REACTIONS (2)
  - ASCITES [None]
  - RESPIRATORY DISORDER [None]
